FAERS Safety Report 25502221 (Version 2)
Quarter: 2025Q3

REPORT INFORMATION
  Report Type: Report from Study
  Country: US (occurrence: US)
  Receive Date: 20250702
  Receipt Date: 20250714
  Transmission Date: 20251021
  Serious: Yes (Other)
  Sender: TAKEDA
  Company Number: US-TAKEDA-2025TUS057246

PATIENT
  Sex: Female

DRUGS (2)
  1. VEDOLIZUMAB [Suspect]
     Active Substance: VEDOLIZUMAB
     Indication: Product used for unknown indication
  2. VEDOLIZUMAB [Suspect]
     Active Substance: VEDOLIZUMAB
     Dosage: 300 MILLIGRAM, Q4WEEKS

REACTIONS (14)
  - Deep vein thrombosis [Unknown]
  - Intestinal obstruction [Unknown]
  - Weight decreased [Unknown]
  - Hepatic enzyme increased [Unknown]
  - Gastrointestinal motility disorder [Unknown]
  - Condition aggravated [Unknown]
  - Diarrhoea [Unknown]
  - Therapeutic reaction time decreased [Unknown]
  - Off label use [Unknown]
  - Product dose omission issue [Unknown]
  - Product availability issue [Unknown]
  - Malaise [Unknown]
  - Abdominal pain [Unknown]
  - Decreased appetite [Unknown]
